FAERS Safety Report 10559917 (Version 1)
Quarter: 2014Q4

REPORT INFORMATION
  Report Type: Spontaneous
  Country: US (occurrence: None)
  Receive Date: 20141031
  Receipt Date: 20141031
  Transmission Date: 20150529
  Serious: Yes (Other)
  Sender: FDA-Public Use
  Company Number: None

PATIENT
  Age: 30 Year
  Sex: Female
  Weight: 45.36 kg

DRUGS (1)
  1. MEFLOQUINE 250MG [Suspect]
     Active Substance: MEFLOQUINE
     Indication: MALARIA PROPHYLAXIS
     Route: 048
     Dates: start: 20140618, end: 20140813

REACTIONS (11)
  - Dizziness [None]
  - Insomnia [None]
  - Rash [None]
  - Chest discomfort [None]
  - Headache [None]
  - Pruritus [None]
  - Fatigue [None]
  - Nausea [None]
  - Vomiting [None]
  - Malaise [None]
  - Asthenia [None]

NARRATIVE: CASE EVENT DATE: 20140625
